FAERS Safety Report 16917095 (Version 1)
Quarter: 2019Q4

REPORT INFORMATION
  Report Type: Spontaneous
  Country: FR (occurrence: FR)
  Receive Date: 20191015
  Receipt Date: 20191015
  Transmission Date: 20200122
  Serious: Yes (Hospitalization)
  Sender: FDA-Public Use
  Company Number: FR-TEVA-2019-FR-1120165

PATIENT
  Age: 5 Month
  Sex: Female
  Weight: 4.63 kg

DRUGS (2)
  1. CARBOPLATINE [Suspect]
     Active Substance: CARBOPLATIN
     Indication: EPENDYMOMA
     Dosage: 412.5 MG / M2 OR 77 MG OVER 1 HOUR TO D1
     Route: 041
     Dates: start: 20190301, end: 20190301
  2. VINCRISTINE (SULFATE DE) [Suspect]
     Active Substance: VINCRISTINE SULFATE
     Indication: EPENDYMOMA
     Dosage: 1.125 MG / M2 OR 0.21 MG OVER 10 MIN AT DAY 1
     Route: 041
     Dates: start: 20190301, end: 20190301

REACTIONS (2)
  - Ventriculo-peritoneal shunt [Recovered/Resolved]
  - Hydrocephalus [Recovered/Resolved]

NARRATIVE: CASE EVENT DATE: 20190312
